FAERS Safety Report 5110700-6 (Version None)
Quarter: 2006Q3

REPORT INFORMATION
  Report Type: 
  Country: None (occurrence: None)
  Receive Date: 20060919
  Receipt Date: 20060909
  Transmission Date: 20061208
  Serious: Yes (Other)
  Sender: FDA-Public Use
  Company Number: 163-20785-06090135

PATIENT
  Age: 48 Year
  Sex: Female

DRUGS (2)
  1. THALOMID [Suspect]
     Indication: MULTIPLE MYELOMA
     Dosage: 100-200 MG, 2 IN 1 D, ORAL
     Route: 048
     Dates: start: 20050919, end: 20060901
  2. COUMADIN [Concomitant]

REACTIONS (3)
  - BLOOD HUMAN CHORIONIC GONADOTROPIN ABNORMAL [None]
  - BLOOD HUMAN CHORIONIC GONADOTROPIN INCREASED [None]
  - PROTHROMBIN TIME PROLONGED [None]
